FAERS Safety Report 17229513 (Version 1)
Quarter: 2019Q4

REPORT INFORMATION
  Report Type: Spontaneous
  Country: US (occurrence: US)
  Receive Date: 20191210
  Receipt Date: 20191210
  Transmission Date: 20200122
  Serious: Yes (Other)
  Sender: FDA-Public Use
  Company Number: None

PATIENT
  Age: 54 Year
  Sex: Female
  Weight: 79.38 kg

DRUGS (8)
  1. ESCITALOPRAM [Concomitant]
     Active Substance: ESCITALOPRAM OXALATE
  2. TURMERIC [Concomitant]
     Active Substance: HERBALS\TURMERIC
  3. GINGER ROOT [Concomitant]
     Active Substance: GINGER
  4. COSENTYX [Suspect]
     Active Substance: SECUKINUMAB
     Indication: PSORIATIC ARTHROPATHY
     Dosage: ?          QUANTITY:150 MG MILLIGRAM(S);?
     Route: 058
     Dates: start: 20191002, end: 20191030
  5. LEVOTHYROXIN [Concomitant]
     Active Substance: LEVOTHYROXINE
  6. DILITAZEM [Concomitant]
  7. MELOXICAM. [Concomitant]
     Active Substance: MELOXICAM
  8. GRAPESEED EXTRACT [Concomitant]

REACTIONS (7)
  - Vaginal infection [None]
  - Rectal ulcer [None]
  - Blood urine present [None]
  - Urinary tract infection [None]
  - Red blood cell count increased [None]
  - Stomatitis [None]
  - White blood cell count increased [None]

NARRATIVE: CASE EVENT DATE: 20191007
